FAERS Safety Report 9337594 (Version 1)
Quarter: 2013Q2

REPORT INFORMATION
  Report Type: Spontaneous
  Country: DE (occurrence: DE)
  Receive Date: 20130607
  Receipt Date: 20130607
  Transmission Date: 20140414
  Serious: Yes (Congenital Anomaly, Other)
  Sender: FDA-Public Use
  Company Number: DE-TEVA-408579GER

PATIENT
  Sex: Female
  Weight: 2.92 kg

DRUGS (2)
  1. BISOPROLOL [Suspect]
     Route: 064
  2. FERRO FOLSAN [Concomitant]
     Route: 064

REACTIONS (3)
  - Bradycardia neonatal [Recovered/Resolved]
  - Haemangioma congenital [Recovering/Resolving]
  - Small for dates baby [Recovered/Resolved]
